FAERS Safety Report 10258273 (Version 1)
Quarter: 2014Q2

REPORT INFORMATION
  Report Type: Spontaneous
  Country: US (occurrence: None)
  Receive Date: 20140623
  Receipt Date: 20140623
  Transmission Date: 20141212
  Serious: Yes (Disabling)
  Sender: FDA-Public Use
  Company Number: None

PATIENT
  Sex: Female

DRUGS (8)
  1. GLEEVEC [Suspect]
     Route: 048
  2. GLEEVEC [Suspect]
     Route: 048
  3. TRAMADOL [Concomitant]
  4. VITAMIN E [Concomitant]
  5. VITAMIN C [Concomitant]
  6. CALCIUM [Concomitant]
  7. EFFEXOR [Concomitant]
  8. LORAZEPAM [Concomitant]

REACTIONS (3)
  - Abasia [None]
  - Fatigue [None]
  - Cardiac discomfort [None]
